FAERS Safety Report 9155424 (Version 1)
Quarter: 2013Q1

REPORT INFORMATION
  Report Type: Spontaneous
  Country: US (occurrence: US)
  Receive Date: 20130311
  Receipt Date: 20130311
  Transmission Date: 20140127
  Serious: Yes (Death, Other)
  Sender: FDA-Public Use
  Company Number: US-TEVA-390160USA

PATIENT
  Age: 42 Year
  Sex: Male

DRUGS (1)
  1. PROAIR HFA [Suspect]
     Indication: DYSPNOEA
     Route: 055

REACTIONS (1)
  - Myocardial infarction [Fatal]
